FAERS Safety Report 5421718-8 (Version None)
Quarter: 2007Q3

REPORT INFORMATION
  Report Type: 
  Country: None (occurrence: None)
  Receive Date: 20070821
  Receipt Date: 20070809
  Transmission Date: 20080115
  Serious: Yes (Hospitalization)
  Sender: FDA-Public Use
  Company Number: GB-PFIZER INC-2007066644

PATIENT

DRUGS (1)
  1. GENOTROPIN [Suspect]

REACTIONS (2)
  - GLIOBLASTOMA [None]
  - GRAND MAL CONVULSION [None]
